FAERS Safety Report 7751815-3 (Version None)
Quarter: 2011Q3

REPORT INFORMATION
  Report Type: 
  Country: None (occurrence: None)
  Receive Date: 20110915
  Receipt Date: 20110912
  Transmission Date: 20111222
  Serious: Yes (Death)
  Sender: FDA-Public Use
  Company Number: US-RANBAXY-2011US-47670

PATIENT
  Age: 3 Year
  Sex: Male

DRUGS (1)
  1. ACETAMINOPHEN [Suspect]
     Indication: UPPER RESPIRATORY TRACT INFECTION
     Dosage: UNK, UNK
     Route: 048

REACTIONS (6)
  - HEPATIC FAILURE [None]
  - MEDICATION ERROR [None]
  - SEPSIS [None]
  - HYPOTENSION [None]
  - GASTROINTESTINAL HAEMORRHAGE [None]
  - RENAL FAILURE [None]
